FAERS Safety Report 7686727-7 (Version None)
Quarter: 2011Q3

REPORT INFORMATION
  Report Type: 
  Country: None (occurrence: None)
  Receive Date: 20110816
  Receipt Date: 20110808
  Transmission Date: 20111222
  Serious: Yes (Other)
  Sender: FDA-Public Use
  Company Number: US-BAYER-2011-070354

PATIENT
  Sex: Female

DRUGS (1)
  1. MIRENA [Suspect]
     Indication: ENDOMETRIOSIS
     Dosage: 20 MCG/24HR, CONT
     Route: 015
     Dates: start: 20110501

REACTIONS (6)
  - ACNE [None]
  - PRURITUS [None]
  - URINARY TRACT INFECTION [None]
  - ABDOMINAL DISTENSION [None]
  - ALOPECIA [None]
  - BACK PAIN [None]
